FAERS Safety Report 9746724 (Version 1)
Quarter: 2013Q4

REPORT INFORMATION
  Report Type: Spontaneous
  Country: IT (occurrence: IT)
  Receive Date: 20131211
  Receipt Date: 20131211
  Transmission Date: 20140711
  Serious: Yes (Hospitalization)
  Sender: FDA-Public Use
  Company Number: IT-CELGENEUS-083-20785-13115728

PATIENT
  Age: 52 Year
  Sex: Male

DRUGS (4)
  1. THALIDOMIDE CELGENE [Suspect]
     Indication: CROHN^S DISEASE
     Dosage: 50 MILLIGRAM
     Route: 048
     Dates: start: 20130318, end: 20130612
  2. DELTACORTENE [Concomitant]
     Indication: CROHN^S DISEASE
     Route: 048
  3. LOBIVON [Concomitant]
     Indication: HYPERTENSION
     Route: 048
  4. FLUXARTEN [Concomitant]
     Indication: PRODUCT USED FOR UNKNOWN INDICATION
     Route: 048

REACTIONS (2)
  - Hypoaesthesia [Recovered/Resolved with Sequelae]
  - Erectile dysfunction [Recovered/Resolved with Sequelae]
